FAERS Safety Report 8772407 (Version 3)
Quarter: 2012Q4

REPORT INFORMATION
  Report Type: 
  Country: FI (occurrence: FI)
  Receive Date: 20120905
  Receipt Date: 20121203
  Transmission Date: 20130627
  Serious: Yes (Hospitalization, Other)
  Sender: FDA-Public Use
  Company Number: PHHY2012FI076581

PATIENT
  Age: 24 Year
  Sex: Male

DRUGS (3)
  1. LEPONEX [Suspect]
     Indication: PSYCHOTIC DISORDER
     Dates: start: 20120203
  2. LEPONEX [Suspect]
     Dosage: 250 mg, QD
     Route: 048
  3. SERDOLECT [Suspect]
     Dosage: 16 mg, QD
     Dates: start: 20120731

REACTIONS (6)
  - Fall [Unknown]
  - Joint injury [Unknown]
  - Circulatory collapse [Unknown]
  - Heart rate increased [Unknown]
  - Electrocardiogram QT prolonged [Unknown]
  - Blood pressure increased [Unknown]
